FAERS Safety Report 4549836-7 (Version None)
Quarter: 2004Q4

REPORT INFORMATION
  Report Type: 
  Country: None (occurrence: None)
  Receive Date: 20041227
  Receipt Date: 20041101
  Transmission Date: 20050328
  Serious: No
  Sender: FDA-Public Use
  Company Number: 04P-163-0279501-00

PATIENT
  Age: 66 Year
  Sex: Male
  Weight: 108 kg

DRUGS (4)
  1. HUMIRA [Suspect]
     Indication: PSORIASIS
     Dosage: 40 MG, 1 IN 1 WK, SUBCUTANEOUS
     Route: 058
     Dates: start: 20040901
  2. METFORMIN HCL [Concomitant]
  3. INSULIN [Concomitant]
  4. BENECAR [Concomitant]

REACTIONS (1)
  - BRONCHIAL INFECTION [None]
